FAERS Safety Report 20790942 (Version 1)
Quarter: 2022Q2

REPORT INFORMATION
  Report Type: Spontaneous
  Country: US (occurrence: US)
  Receive Date: 20220505
  Receipt Date: 20220505
  Transmission Date: 20220721
  Serious: Yes (Life-Threatening, Hospitalization)
  Sender: FDA-Public Use
  Company Number: US-MYLANLABS-2022M1032916

PATIENT
  Age: 68 Year
  Sex: Male

DRUGS (1)
  1. ATORVASTATIN [Suspect]
     Active Substance: ATORVASTATIN
     Indication: Ischaemic stroke
     Dosage: HIGH-DOSE
     Route: 065

REACTIONS (6)
  - Myopathy [Unknown]
  - Immune-mediated myositis [Unknown]
  - Respiratory failure [Unknown]
  - Cardiac arrest [Recovering/Resolving]
  - Hypoxia [Recovering/Resolving]
  - Gait disturbance [Unknown]
